FAERS Safety Report 9555319 (Version 1)
Quarter: 2013Q3

REPORT INFORMATION
  Report Type: Spontaneous
  Country: US (occurrence: None)
  Receive Date: 20130906
  Receipt Date: 20130906
  Transmission Date: 20140515
  Serious: Yes (Other)
  Sender: FDA-Public Use
  Company Number: AUR-APL-2013-05056

PATIENT
  Age: 73 Year
  Sex: Female
  Weight: 100 kg

DRUGS (4)
  1. CLOPIDOGREL [Suspect]
     Indication: PRODUCT USED FOR UNKNOWN INDICATION
  2. OXYGEN [Suspect]
     Indication: PRODUCT USED FOR UNKNOWN INDICATION
  3. PRAVASTATIN (PRAVASTATIN) [Concomitant]
  4. APIXABAN (APIXABAN) [Concomitant]

REACTIONS (1)
  - Epistaxis [None]
